FAERS Safety Report 5676185-6 (Version None)
Quarter: 2008Q1

REPORT INFORMATION
  Report Type: 
  Country: None (occurrence: None)
  Receive Date: 20080321
  Receipt Date: 20080310
  Transmission Date: 20080703
  Serious: Yes (Hospitalization)
  Sender: FDA-Public Use
  Company Number: US-AMGEN-STX268984

PATIENT
  Sex: Female

DRUGS (1)
  1. ENBREL [Suspect]
     Indication: RHEUMATOID ARTHRITIS
     Route: 058
     Dates: start: 20030101

REACTIONS (9)
  - BLADDER DISORDER [None]
  - CERVICAL VERTEBRAL FRACTURE [None]
  - DRUG INEFFECTIVE [None]
  - EPISTAXIS [None]
  - FOOT DEFORMITY [None]
  - HIP ARTHROPLASTY [None]
  - JOINT ARTHROPLASTY [None]
  - KNEE ARTHROPLASTY [None]
  - WRIST SURGERY [None]
